FAERS Safety Report 7392455-8 (Version None)
Quarter: 2011Q2

REPORT INFORMATION
  Report Type: 
  Country: None (occurrence: None)
  Receive Date: 20110404
  Receipt Date: 20110331
  Transmission Date: 20111010
  Serious: Yes (Death, Hospitalization)
  Sender: FDA-Public Use
  Company Number: TR-ASTRAZENECA-2011SE18249

PATIENT
  Sex: Female

DRUGS (2)
  1. QUETIAPINE [Suspect]
     Indication: AGITATION
     Route: 048
  2. QUETIAPINE [Suspect]
     Indication: INSOMNIA
     Route: 048

REACTIONS (2)
  - ACUTE HEPATIC FAILURE [None]
  - MULTI-ORGAN FAILURE [None]
